FAERS Safety Report 11127459 (Version 3)
Quarter: 2015Q3

REPORT INFORMATION
  Report Type: Spontaneous
  Country: US (occurrence: US)
  Receive Date: 20150521
  Receipt Date: 20150820
  Transmission Date: 20151125
  Serious: Yes (Hospitalization)
  Sender: FDA-Public Use
  Company Number: US-PERRIGO-15US004996

PATIENT
  Age: 58 Year
  Sex: Male
  Weight: 113.38 kg

DRUGS (4)
  1. IBUPROFEN 200 MG 604 [Suspect]
     Active Substance: IBUPROFEN
     Indication: PAIN
     Dosage: 400 MG, PRN
     Route: 048
     Dates: start: 2013, end: 20131129
  2. SPIRIVA [Concomitant]
     Active Substance: TIOTROPIUM BROMIDE MONOHYDRATE
     Indication: PRODUCT USED FOR UNKNOWN INDICATION
     Dosage: 18 MCG, QD
     Route: 055
  3. IBUPROFEN 200 MG 604 [Suspect]
     Active Substance: IBUPROFEN
     Dosage: 1000 MG, UNK
     Route: 048
     Dates: start: 2013, end: 2013
  4. ADVAIR HFA [Concomitant]
     Active Substance: FLUTICASONE PROPIONATE\SALMETEROL XINAFOATE
     Indication: PRODUCT USED FOR UNKNOWN INDICATION
     Dosage: 1 PUFF Q 12 HR
     Route: 055

REACTIONS (7)
  - Asthenia [Recovered/Resolved]
  - Incorrect dose administered [Unknown]
  - Gastric haemorrhage [Recovered/Resolved]
  - Fall [Recovered/Resolved]
  - Gastric ulcer [Recovering/Resolving]
  - Blood count abnormal [Recovered/Resolved]
  - Dizziness [Recovered/Resolved]

NARRATIVE: CASE EVENT DATE: 2013
